FAERS Safety Report 19239997 (Version 1)
Quarter: 2021Q2

REPORT INFORMATION
  Report Type: Report from Study
  Country: US (occurrence: US)
  Receive Date: 20210511
  Receipt Date: 20210511
  Transmission Date: 20210717
  Serious: No
  Sender: FDA-Public Use
  Company Number: NVSC2021US104775

PATIENT
  Sex: Male

DRUGS (3)
  1. CARDIOVEL [Suspect]
     Active Substance: IRBESARTAN
     Indication: BLOOD PRESSURE MEASUREMENT
  2. CARDIOVEL [Suspect]
     Active Substance: IRBESARTAN
     Indication: CARDIAC FAILURE
     Dosage: UNK
     Route: 048
     Dates: start: 20210307
  3. ENTRESTO [Suspect]
     Active Substance: SACUBITRIL\VALSARTAN
     Indication: CARDIAC FAILURE
     Dosage: 50 MG (24/26 MG), BID
     Route: 048
     Dates: start: 20210307

REACTIONS (2)
  - Memory impairment [Unknown]
  - Dizziness [Unknown]

NARRATIVE: CASE EVENT DATE: 20210307
